FAERS Safety Report 22226108 (Version 1)
Quarter: 2023Q2

REPORT INFORMATION
  Report Type: Spontaneous
  Country: DE (occurrence: DE)
  Receive Date: 20230419
  Receipt Date: 20230419
  Transmission Date: 20230721
  Serious: Yes (Other)
  Sender: FDA-Public Use
  Company Number: DE-STRIDES ARCOLAB LIMITED-2023SP005549

PATIENT

DRUGS (8)
  1. DEXAMETHASONE [Suspect]
     Active Substance: DEXAMETHASONE
     Indication: Plasma cell myeloma refractory
     Dosage: 40 MILLIGRAM, CYCLICAL; AS A PART OF VTD-PACE REGIMEN; ON DAYS 1, 2, 3, 4
     Route: 048
  2. CISPLATIN [Suspect]
     Active Substance: CISPLATIN
     Indication: Plasma cell myeloma refractory
     Dosage: 10 MILLIGRAM/SQ.METER PER DAY; AS A PART OF VTD-PACE REGIMEN; CONTINUOUS IV INFUSIONS FROM DAY 1-4,
     Route: 042
  3. DOXORUBICIN [Suspect]
     Active Substance: DOXORUBICIN
     Indication: Plasma cell myeloma refractory
     Dosage: 10 MILLIGRAM/SQ. METER PER DAY; AS A PART OF VTD-PACE REGIMEN; IV INFUSIONS FROM DAY 1-4, BSA/DAY
     Route: 042
  4. ETOPOSIDE [Suspect]
     Active Substance: ETOPOSIDE
     Indication: Plasma cell myeloma refractory
     Dosage: 40 MILLIGRAM/SQ. METER PER DAY; AS A PART OF VTD-PACE REGIMEN; CONTINUOUS IV INFUSIONS FROM DAY 1-4,
     Route: 042
  5. BORTEZOMIB [Suspect]
     Active Substance: BORTEZOMIB
     Indication: Plasma cell myeloma refractory
     Dosage: 1 MILLIGRAM/SQ. METER, CYCLICAL; AS A PART OF VTD-PACE REGIMEN; SC BORTEZOMIB 1MG/M 2 BSA ON DAYS 1,
     Route: 058
  6. THALIDOMIDE [Suspect]
     Active Substance: THALIDOMIDE
     Indication: Plasma cell myeloma refractory
     Dosage: 200 MILLIGRAM PER DAY; AS A PART OF VTD-PACE REGIMEN; ORAL THALIDOMIDE 200MG ONCE A DAY THROUGH OUT
     Route: 048
  7. CYCLOPHOSPHAMIDE [Suspect]
     Active Substance: CYCLOPHOSPHAMIDE
     Indication: Plasma cell myeloma refractory
     Dosage: 400 MILLIGRAM/SQ. METER PER DAY; AS A PART OF VTD-PACE REGIMEN, IV INFUSIONS FROM DAY 1-4, BSA/DAY
     Route: 042
  8. DARATUMUMAB [Suspect]
     Active Substance: DARATUMUMAB
     Indication: Plasma cell myeloma refractory
     Dosage: UNK
     Route: 065

REACTIONS (4)
  - Neutropenia [Unknown]
  - Thrombocytopenia [Unknown]
  - Lymphopenia [Unknown]
  - Off label use [Unknown]
